FAERS Safety Report 7960264-4 (Version None)
Quarter: 2011Q4

REPORT INFORMATION
  Report Type: 
  Country: None (occurrence: None)
  Receive Date: 20111206
  Receipt Date: 20111201
  Transmission Date: 20120403
  Serious: Yes (Hospitalization)
  Sender: FDA-Public Use
  Company Number: US-ACTELION-A-NJ2010-39230

PATIENT

DRUGS (5)
  1. TRACLEER [Suspect]
     Indication: PULMONARY ARTERIAL HYPERTENSION
     Dosage: 125 MG, BID
     Route: 048
  2. TRACLEER [Suspect]
     Dosage: UNK
     Route: 048
     Dates: start: 20061201, end: 20100101
  3. TRACLEER [Suspect]
     Dosage: 62.5 MG, BID
     Route: 048
     Dates: start: 20100101
  4. COUMADIN [Concomitant]
  5. MYCOPHENOLATE MOFETIL (CELLCEPT) [Concomitant]

REACTIONS (7)
  - LUNG INFECTION [None]
  - COUGH [None]
  - CHEST PAIN [None]
  - OESOPHAGEAL SPASM [None]
  - FATIGUE [None]
  - PYREXIA [None]
  - PAIN [None]
